FAERS Safety Report 18534000 (Version 1)
Quarter: 2020Q4

REPORT INFORMATION
  Report Type: Report from Study
  Country: SG (occurrence: SG)
  Receive Date: 20201123
  Receipt Date: 20201123
  Transmission Date: 20210114
  Serious: Yes (Other)
  Sender: FDA-Public Use
  Company Number: SG-PFIZER INC-2020454153

PATIENT

DRUGS (1)
  1. TRANEXAMIC ACID. [Suspect]
     Active Substance: TRANEXAMIC ACID
     Indication: SUBDURAL HAEMORRHAGE
     Dosage: 500 MG, CYCLIC (TWICE DAILY FOR A TOTAL OF 21 DAYS)
     Route: 048

REACTIONS (1)
  - Cerebral infarction [Unknown]
